FAERS Safety Report 17394198 (Version 1)
Quarter: 2020Q1

REPORT INFORMATION
  Report Type: Report from Study
  Country: None (occurrence: US)
  Receive Date: 20200210
  Receipt Date: 20200210
  Transmission Date: 20200409
  Serious: Yes (Death, Other)
  Sender: FDA-Public Use
  Company Number: US-ABBVIE-18K-163-2287081-00

PATIENT
  Age: 47 Year
  Sex: Female

DRUGS (3)
  1. HUMIRA [Suspect]
     Active Substance: ADALIMUMAB
     Indication: COLITIS ULCERATIVE
     Route: 058
  2. HUMIRA [Suspect]
     Active Substance: ADALIMUMAB
     Dosage: INCREASED DOSE
     Route: 058
  3. METHOTREXATE. [Suspect]
     Active Substance: METHOTREXATE
     Indication: PRODUCT USED FOR UNKNOWN INDICATION
     Route: 058

REACTIONS (12)
  - Surgery [Unknown]
  - Immunodeficiency [Recovered/Resolved]
  - Rheumatoid arthritis [Unknown]
  - Musculoskeletal stiffness [Not Recovered/Not Resolved]
  - Toxicity to various agents [Recovering/Resolving]
  - Hypotension [Unknown]
  - Pneumonia [Recovered/Resolved]
  - Death [Fatal]
  - Blood glucose decreased [Recovered/Resolved]
  - Malaise [Not Recovered/Not Resolved]
  - Heart rate decreased [Unknown]
  - Urinary tract infection [Unknown]

NARRATIVE: CASE EVENT DATE: 201801
